FAERS Safety Report 14074943 (Version 1)
Quarter: 2017Q4

REPORT INFORMATION
  Report Type: Report from Study
  Country: US (occurrence: US)
  Receive Date: 20171010
  Receipt Date: 20171010
  Transmission Date: 20180321
  Serious: Yes (Death)
  Sender: FDA-Public Use
  Company Number: US-EXELIXIS-CABO-17010743

PATIENT
  Age: 73 Year
  Sex: Male
  Weight: 89.34 kg

DRUGS (20)
  1. CALCIUM [Concomitant]
     Active Substance: CALCIUM
  2. NITROGLYCERINE [Concomitant]
     Active Substance: NITROGLYCERIN
  3. TOPROL XL [Concomitant]
     Active Substance: METOPROLOL SUCCINATE
  4. LOVENOX [Concomitant]
     Active Substance: ENOXAPARIN SODIUM
  5. ONDANSETRON [Concomitant]
     Active Substance: ONDANSETRON
  6. NYSTATIN. [Concomitant]
     Active Substance: NYSTATIN
  7. BISAC EVAC [Concomitant]
  8. LIPITOR [Concomitant]
     Active Substance: ATORVASTATIN CALCIUM
  9. LORAZEPAM. [Concomitant]
     Active Substance: LORAZEPAM
  10. ELIQUIS [Concomitant]
     Active Substance: APIXABAN
  11. MORPHINE [Concomitant]
     Active Substance: MORPHINE
  12. CABOMETYX [Suspect]
     Active Substance: CABOZANTINIB S-MALATE
     Indication: RENAL CANCER
     Dosage: 40 MG, QD
     Route: 048
  13. OXYCONTIN [Concomitant]
     Active Substance: OXYCODONE HYDROCHLORIDE
  14. VITAMIN D3 [Concomitant]
     Active Substance: CHOLECALCIFEROL
  15. IRBESARTAN AND HYDROCHLOROTHIAZIDE [Concomitant]
     Active Substance: HYDROCHLOROTHIAZIDE\IRBESARTAN
  16. IMODIUM [Concomitant]
     Active Substance: LOPERAMIDE HYDROCHLORIDE
  17. NORVASC [Concomitant]
     Active Substance: AMLODIPINE BESYLATE
  18. HYDROMORPHONE [Concomitant]
     Active Substance: HYDROMORPHONE
  19. PROCHLORPERAZINE. [Concomitant]
     Active Substance: PROCHLORPERAZINE
  20. OLANZAPINE. [Concomitant]
     Active Substance: OLANZAPINE

REACTIONS (1)
  - Death [Fatal]

NARRATIVE: CASE EVENT DATE: 20170928
